FAERS Safety Report 4979528-1 (Version None)
Quarter: 2006Q1

REPORT INFORMATION
  Report Type: 
  Country: None (occurrence: None)
  Receive Date: 20060223
  Receipt Date: 20051226
  Transmission Date: 20060701
  Serious: No
  Sender: FDA-Public Use
  Company Number: HQWYE177304JAN06

PATIENT
  Age: 73 Year
  Sex: Female
  Weight: 58.11 kg

DRUGS (3)
  1. EFFEXOR [Suspect]
     Indication: DEPRESSION
     Dosage: 75 MG 2X PER 1 DAY, ORAL
     Route: 048
  2. ACTONEL [Suspect]
     Indication: BONE DENSITY DECREASED
     Dates: start: 20040101
  3. PREMARIN [Concomitant]

REACTIONS (5)
  - BLOOD GLUCOSE DECREASED [None]
  - BLOOD PRESSURE INCREASED [None]
  - DRUG INTERACTION [None]
  - NIGHTMARE [None]
  - WEIGHT DECREASED [None]
